FAERS Safety Report 8591904-7 (Version None)
Quarter: 2012Q3

REPORT INFORMATION
  Report Type: 
  Country: None (occurrence: None)
  Receive Date: 20120814
  Receipt Date: 20120808
  Transmission Date: 20120928
  Serious: Yes (Hospitalization)
  Sender: FDA-Public Use
  Company Number: US-VERTEX PHARMACEUTICALS INC.-AE-2012-006030

PATIENT
  Sex: Female

DRUGS (3)
  1. INCIVEK [Suspect]
     Indication: HEPATITIS C
     Route: 048
     Dates: start: 20120302, end: 20120415
  2. PEGASYS [Concomitant]
     Indication: HEPATITIS C
     Route: 058
     Dates: start: 20120302, end: 20120701
  3. RIBAVIRIN [Concomitant]
     Indication: HEPATITIS C
     Dates: start: 20120302

REACTIONS (11)
  - SKIN ULCER [None]
  - VISION BLURRED [None]
  - BLOOD GLUCOSE INCREASED [None]
  - CELLULITIS [None]
  - PRURITUS [None]
  - RASH ERYTHEMATOUS [None]
  - INSOMNIA [None]
  - FEELING HOT [None]
  - HYPERTENSION [None]
  - HEART RATE INCREASED [None]
  - STOMATITIS [None]
